FAERS Safety Report 11229340 (Version 7)
Quarter: 2016Q4

REPORT INFORMATION
  Report Type: Report from Study
  Country: DE (occurrence: DE)
  Receive Date: 20150630
  Receipt Date: 20161202
  Transmission Date: 20170206
  Serious: Yes (Hospitalization)
  Sender: FDA-Public Use
  Company Number: PHHY2015DE041892

PATIENT
  Age: 55 Year
  Sex: Male

DRUGS (1)
  1. GILENYA [Suspect]
     Active Substance: FINGOLIMOD HYDROCHLORIDE
     Indication: MULTIPLE SCLEROSIS
     Dosage: 0.5 MG, QD
     Route: 048
     Dates: start: 20141113, end: 20150408

REACTIONS (4)
  - Cataract [Recovered/Resolved]
  - Paraesthesia [Recovered/Resolved]
  - Central nervous system lesion [Unknown]
  - Blood brain barrier defect [Recovered/Resolved]

NARRATIVE: CASE EVENT DATE: 20150330
